FAERS Safety Report 6651816-2 (Version None)
Quarter: 2010Q1

REPORT INFORMATION
  Report Type: 
  Country: None (occurrence: None)
  Receive Date: 20100322
  Receipt Date: 20100309
  Transmission Date: 20100710
  Serious: Yes (Other)
  Sender: FDA-Public Use
  Company Number: LEO-2010-00113

PATIENT
  Age: 77 Year
  Sex: Female
  Weight: 68 kg

DRUGS (2)
  1. INNOHEP [Suspect]
     Indication: THROMBOSIS PROPHYLAXIS
     Dosage: INTRAVENOUS; INTRAVENOUS
     Route: 042
     Dates: start: 20100118, end: 20100118
  2. INNOHEP [Suspect]
     Indication: THROMBOSIS PROPHYLAXIS
     Dosage: INTRAVENOUS; INTRAVENOUS
     Route: 042
     Dates: start: 20100125, end: 20100125

REACTIONS (7)
  - ANAPHYLACTIC REACTION [None]
  - DIZZINESS [None]
  - DYSPNOEA [None]
  - ERYTHEMA [None]
  - FEELING HOT [None]
  - HAEMODIALYSIS [None]
  - SWELLING FACE [None]
